FAERS Safety Report 10332933 (Version 2)
Quarter: 2014Q3

REPORT INFORMATION
  Report Type: Spontaneous
  Country: US (occurrence: US)
  Receive Date: 20140722
  Receipt Date: 20140722
  Transmission Date: 20150326
  Serious: No
  Sender: FDA-Public Use
  Company Number: US-PFIZER INC-2014185742

PATIENT
  Age: 48 Year
  Sex: Female
  Weight: 100.68 kg

DRUGS (7)
  1. NOVOCAINE [Suspect]
     Active Substance: PROCAINE
     Dosage: UNK
  2. METHADONE [Suspect]
     Active Substance: METHADONE HYDROCHLORIDE
     Dosage: UNK
  3. VANCOMYCIN [Suspect]
     Active Substance: VANCOMYCIN
     Dosage: UNK
  4. LIDOCANINE HYDROCHLORIDE EPINEPHRINE SUNSTAR [Suspect]
     Active Substance: EPINEPHRINE\LIDOCAINE HYDROCHLORIDE
     Dosage: UNK
  5. GABAPENTIN. [Suspect]
     Active Substance: GABAPENTIN
     Dosage: UNK
  6. DIOVAN [Suspect]
     Active Substance: VALSARTAN
     Dosage: UNK
  7. AMPICILLIN [Suspect]
     Active Substance: AMPICILLIN
     Dosage: UNK

REACTIONS (1)
  - Drug hypersensitivity [Not Recovered/Not Resolved]

NARRATIVE: CASE EVENT DATE: 2011
